FAERS Safety Report 6831121-1 (Version None)
Quarter: 2010Q3

REPORT INFORMATION
  Report Type: 
  Country: None (occurrence: None)
  Receive Date: 20100712
  Receipt Date: 20100701
  Transmission Date: 20110219
  Serious: Yes (Other)
  Sender: FDA-Public Use
  Company Number: US-BAYER-201026809NA

PATIENT
  Age: 57 Year
  Sex: Male

DRUGS (3)
  1. BETASERON [Suspect]
     Indication: SECONDARY PROGRESSIVE MULTIPLE SCLEROSIS
     Dosage: TOTAL DAILY DOSE: 8 MIU
     Route: 058
     Dates: start: 20080816
  2. BETASERON [Suspect]
     Route: 058
     Dates: start: 20070730, end: 20070821
  3. BETASERON [Suspect]
     Route: 058
     Dates: start: 20000121, end: 20010101

REACTIONS (3)
  - CHILLS [None]
  - MUSCULOSKELETAL STIFFNESS [None]
  - PARALYSIS [None]
